FAERS Safety Report 20152300 (Version 1)
Quarter: 2021Q4

REPORT INFORMATION
  Report Type: Spontaneous
  Country: NL (occurrence: NL)
  Receive Date: 20211206
  Receipt Date: 20211206
  Transmission Date: 20220304
  Serious: Yes (Other)
  Sender: FDA-Public Use
  Company Number: None

PATIENT
  Sex: Female
  Weight: 56 kg

DRUGS (4)
  1. SERTRALINE [Suspect]
     Active Substance: SERTRALINE HYDROCHLORIDE
     Indication: Anxiety
     Dosage: 100 MG,  1 X PER DAG 1 STUK
     Dates: start: 20210701
  2. SERTRALINE [Suspect]
     Active Substance: SERTRALINE HYDROCHLORIDE
     Indication: Depression
     Dosage: 75 MG, 1X/DAY, 1 STUK
  3. BUFOLER EASYHALER [Concomitant]
     Dosage: INHALATIEPOEDER, 160/4.5 ?G/DOSIS (MICROGRAM PER DOSIS), 120DO
  4. OXAZEPAM [Concomitant]
     Active Substance: OXAZEPAM
     Dosage: TABLET, 5 MG (MILLIGRAM)

REACTIONS (2)
  - Suicidal ideation [Not Recovered/Not Resolved]
  - Autophobia [Not Recovered/Not Resolved]
